FAERS Safety Report 6274873-4 (Version None)
Quarter: 2009Q3

REPORT INFORMATION
  Report Type: 
  Country: None (occurrence: None)
  Receive Date: 20090721
  Receipt Date: 20080418
  Transmission Date: 20100115
  Serious: Yes (Other)
  Sender: FDA-Public Use
  Company Number: US-ASTRAZENECA-2006UW09629

PATIENT
  Age: 12906 Day
  Sex: Male
  Weight: 109.8 kg

DRUGS (25)
  1. SEROQUEL [Suspect]
     Indication: ANXIETY
     Route: 048
     Dates: start: 20021202
  2. SEROQUEL [Suspect]
     Indication: SLEEP DISORDER
     Route: 048
     Dates: start: 20021202
  3. SEROQUEL [Suspect]
     Route: 048
     Dates: start: 20030205, end: 20050101
  4. SEROQUEL [Suspect]
     Route: 048
     Dates: start: 20030205, end: 20050101
  5. RISPERDAL [Suspect]
  6. ZYPREXA [Suspect]
  7. PAXIL [Concomitant]
  8. ALBUTEROL [Concomitant]
  9. CELEBREX [Concomitant]
  10. AMITRIPTYLINE [Concomitant]
  11. PROTONIX [Concomitant]
  12. CLONAZEPAM [Concomitant]
  13. GEMFIBROZIL [Concomitant]
  14. AVANDAMET [Concomitant]
  15. MICARDIS [Concomitant]
  16. TRICOR [Concomitant]
  17. WELLBUTRIN XL [Concomitant]
  18. SINGULAIR [Concomitant]
  19. PIOGLITAZONE [Concomitant]
  20. TRAMADOL HCL [Concomitant]
  21. CITALOPRAM HYDROBROMIDE [Concomitant]
  22. LIPITOR [Concomitant]
  23. DEPAKOTE [Concomitant]
  24. MIRTAZAPINE [Concomitant]
  25. GLUCOTROL [Concomitant]

REACTIONS (3)
  - CHOLECYSTITIS CHRONIC [None]
  - DIABETES MELLITUS [None]
  - PANCREATITIS [None]
